FAERS Safety Report 16443274 (Version 1)
Quarter: 2019Q2

REPORT INFORMATION
  Report Type: Report from Study
  Country: None (occurrence: CO)
  Receive Date: 20190618
  Receipt Date: 20190618
  Transmission Date: 20190711
  Serious: Yes (Hospitalization)
  Sender: FDA-Public Use
  Company Number: CO-ABBVIE-19K-036-2823563-00

PATIENT
  Age: 75 Year
  Sex: Male
  Weight: 68 kg

DRUGS (2)
  1. HUMIRA [Suspect]
     Active Substance: ADALIMUMAB
     Indication: PSORIASIS
     Route: 058
     Dates: start: 20140526
  2. HUMIRA [Suspect]
     Active Substance: ADALIMUMAB
     Dosage: HUMIRA AC
     Route: 058

REACTIONS (9)
  - Blood potassium decreased [Unknown]
  - Blood parathyroid hormone abnormal [Recovering/Resolving]
  - Renal injury [Recovering/Resolving]
  - Underweight [Recovering/Resolving]
  - Inflammation [Recovering/Resolving]
  - Blood glucose increased [Unknown]
  - Malaise [Recovering/Resolving]
  - Hypertension [Recovering/Resolving]
  - Dysuria [Recovering/Resolving]

NARRATIVE: CASE EVENT DATE: 201905
